FAERS Safety Report 20956578 (Version 1)
Quarter: 2022Q2

REPORT INFORMATION
  Report Type: Spontaneous
  Country: US (occurrence: None)
  Receive Date: 20220613
  Receipt Date: 20220613
  Transmission Date: 20220720
  Serious: Yes (unspecified)
  Sender: FDA-Public Use
  Company Number: None

PATIENT
  Age: 41 Year
  Sex: Male
  Weight: 29.84 kg

DRUGS (10)
  1. BEBTELOVIMAB [Suspect]
     Active Substance: BEBTELOVIMAB
     Indication: SARS-CoV-2 test positive
     Dosage: OTHER FREQUENCY : ONCE;?
     Route: 042
     Dates: start: 20220419, end: 20220419
  2. ADDERALL [Concomitant]
     Active Substance: AMPHETAMINE ASPARTATE\AMPHETAMINE SULFATE\DEXTROAMPHETAMINE SACCHARATE\DEXTROAMPHETAMINE SULFATE
  3. cympalta [Concomitant]
     Dates: start: 20191209
  4. LUNESTA [Concomitant]
     Active Substance: ESZOPICLONE
     Dates: start: 20210113
  5. VIAGRA [Concomitant]
     Active Substance: SILDENAFIL CITRATE
  6. TIZANIDINE [Concomitant]
     Active Substance: TIZANIDINE
     Dates: start: 20220221
  7. TOPAMAX [Concomitant]
     Active Substance: TOPIRAMATE
     Dates: start: 20210205
  8. TRAZODONE [Concomitant]
     Active Substance: TRAZODONE HYDROCHLORIDE
     Dates: start: 20200810
  9. ZIPRASIDONE [Concomitant]
     Active Substance: ZIPRASIDONE
     Dates: start: 20190228
  10. multi-vit/ supplements [Concomitant]
     Dates: start: 20190201

REACTIONS (3)
  - Dizziness [None]
  - Paraesthesia [None]
  - Dehydration [None]

NARRATIVE: CASE EVENT DATE: 20220419
